FAERS Safety Report 5807603-8 (Version None)
Quarter: 2008Q3

REPORT INFORMATION
  Report Type: 
  Country: None (occurrence: None)
  Receive Date: 20080711
  Receipt Date: 20080702
  Transmission Date: 20090109
  Serious: Yes (Life-Threatening, Hospitalization)
  Sender: FDA-Public Use
  Company Number: JP-SANOFI-SYNTHELABO-A01200806378

PATIENT
  Sex: Female
  Weight: 62 kg

DRUGS (14)
  1. ALEVIATIN [Suspect]
     Indication: EPILEPSY
     Route: 048
     Dates: start: 20080419, end: 20080602
  2. GASTER [Suspect]
     Indication: GASTRITIS
     Route: 048
     Dates: start: 20080501, end: 20080602
  3. UBRETID [Concomitant]
     Indication: NEUROGENIC BLADDER
     Route: 048
     Dates: start: 20080528, end: 20080602
  4. FLUITRAN [Concomitant]
     Indication: HYPERTENSION
     Route: 048
     Dates: start: 20080504, end: 20080602
  5. LUVOX [Concomitant]
     Indication: DEPRESSION
     Route: 048
     Dates: start: 20080428, end: 20080602
  6. AVISHOT [Concomitant]
     Indication: BENIGN PROSTATIC HYPERPLASIA
     Route: 048
     Dates: start: 20080528, end: 20080602
  7. RISPERDAL [Concomitant]
     Indication: SCHIZOPHRENIA
     Route: 048
     Dates: start: 20080512, end: 20080602
  8. ADALAT [Concomitant]
     Indication: HYPERTENSION
     Route: 048
     Dates: start: 20080510, end: 20080602
  9. ASPIRIN [Concomitant]
     Indication: MYOCARDIAL INFARCTION
     Route: 048
     Dates: start: 20080510
  10. DIOVAN [Suspect]
     Indication: HYPERTENSION
     Route: 048
     Dates: start: 20080428, end: 20080602
  11. PLAVIX [Suspect]
     Indication: THROMBOSIS PROPHYLAXIS
     Route: 048
     Dates: start: 20080417, end: 20080602
  12. PLAVIX [Suspect]
     Indication: CAROTID ARTERY STENOSIS
     Route: 048
     Dates: start: 20080417, end: 20080602
  13. PLAVIX [Suspect]
     Indication: CEREBRAL INFARCTION
     Route: 048
     Dates: start: 20080417, end: 20080602
  14. MYSLEE [Suspect]
     Indication: INSOMNIA
     Route: 048
     Dates: start: 20080507, end: 20080602

REACTIONS (3)
  - AGRANULOCYTOSIS [None]
  - ANAEMIA [None]
  - BICYTOPENIA [None]
